FAERS Safety Report 5481031-X (Version None)
Quarter: 2007Q4

REPORT INFORMATION
  Report Type: 
  Country: None (occurrence: None)
  Receive Date: 20071004
  Receipt Date: 20070928
  Transmission Date: 20080405
  Serious: Yes (Death, Hospitalization)
  Sender: FDA-Public Use
  Company Number: 163-21880-07020478

PATIENT
  Age: 64 Year
  Sex: Female

DRUGS (1)
  1. REVLIMID [Suspect]
     Indication: 5Q-SYNDROME
     Dosage: 10 MG, Q DAY X3WEEKS/4, ORAL
     Route: 048
     Dates: start: 20060215, end: 20070201

REACTIONS (11)
  - 5Q-SYNDROME [None]
  - ACUTE MYELOID LEUKAEMIA [None]
  - DISEASE PROGRESSION [None]
  - GENERAL PHYSICAL HEALTH DETERIORATION [None]
  - GINGIVAL INFECTION [None]
  - LOCALISED INFECTION [None]
  - MYELODYSPLASTIC SYNDROME [None]
  - ORAL INFECTION [None]
  - PETECHIAE [None]
  - REFRACTORY ANAEMIA [None]
  - THROMBOCYTOPENIA [None]
